FAERS Safety Report 13962235 (Version 1)
Quarter: 2017Q3

REPORT INFORMATION
  Report Type: Spontaneous
  Country: US (occurrence: US)
  Receive Date: 20170912
  Receipt Date: 20170912
  Transmission Date: 20171128
  Serious: Yes (Other)
  Sender: FDA-Public Use
  Company Number: US-009507513-1709USA005676

PATIENT
  Sex: Male

DRUGS (2)
  1. KEYTRUDA [Suspect]
     Active Substance: PEMBROLIZUMAB
     Indication: NEOPLASM
     Dosage: UNK
  2. KEYTRUDA [Suspect]
     Active Substance: PEMBROLIZUMAB
     Indication: OESOPHAGEAL ADENOCARCINOMA STAGE IV
     Dosage: UNK

REACTIONS (1)
  - Autoimmune retinopathy [Recovered/Resolved]
